FAERS Safety Report 8428069-8 (Version None)
Quarter: 2012Q2

REPORT INFORMATION
  Report Type: 
  Country: None (occurrence: None)
  Receive Date: 20120611
  Receipt Date: 20120606
  Transmission Date: 20120825
  Serious: Yes (Life-Threatening, Hospitalization, Other)
  Sender: FDA-Public Use
  Company Number: CH-ASTRAZENECA-2012SE37768

PATIENT
  Age: 70 Year
  Sex: Male
  Weight: 115 kg

DRUGS (2)
  1. SEROQUEL [Suspect]
     Indication: SOCIAL PHOBIA
     Route: 048
     Dates: start: 20011214, end: 20091222
  2. LEVOTHYROXINE SODIUM [Concomitant]
     Indication: HYPOTHYROIDISM
     Dates: start: 20021028

REACTIONS (26)
  - CARDIAC FAILURE [None]
  - DERMATITIS CONTACT [None]
  - CUTANEOUS VASCULITIS [None]
  - DIABETES MELLITUS [None]
  - PHOTOSENSITIVITY REACTION [None]
  - TINNITUS [None]
  - ASTHMA [None]
  - PARKINSON'S DISEASE [None]
  - BORDERLINE GLAUCOMA [None]
  - DEEP VEIN THROMBOSIS [None]
  - BRUXISM [None]
  - ARRHYTHMIA [None]
  - NECK PAIN [None]
  - HYPOTHYROIDISM [None]
  - HYPERTENSION [None]
  - SUBDURAL HAEMATOMA [None]
  - GAMMA-GLUTAMYLTRANSFERASE INCREASED [None]
  - RENAL FAILURE [None]
  - ACUTE CORONARY SYNDROME [None]
  - MIGRAINE [None]
  - ELECTROCARDIOGRAM QT PROLONGED [None]
  - FRONTOTEMPORAL DEMENTIA [None]
  - GASTROOESOPHAGEAL REFLUX DISEASE [None]
  - HYPERLIPIDAEMIA [None]
  - ARTHRALGIA [None]
  - INSOMNIA [None]
